FAERS Safety Report 13446590 (Version 1)
Quarter: 2017Q2

REPORT INFORMATION
  Report Type: Spontaneous
  Country: US (occurrence: US)
  Receive Date: 20170417
  Receipt Date: 20170417
  Transmission Date: 20170830
  Serious: Yes (Other)
  Sender: FDA-Public Use
  Company Number: US-DRREDDYS-USA/USA/17/0088646

PATIENT
  Age: 51 Year
  Sex: Female
  Weight: 64.4 kg

DRUGS (1)
  1. HABITROL [Suspect]
     Active Substance: NICOTINE
     Indication: SMOKING CESSATION THERAPY
     Route: 062
     Dates: start: 20170404, end: 20170405

REACTIONS (8)
  - Angina pectoris [Recovering/Resolving]
  - Musculoskeletal pain [Recovering/Resolving]
  - Application site pain [Recovering/Resolving]
  - Limb deformity [Recovering/Resolving]
  - Chest pain [Recovering/Resolving]
  - Breast pain [Recovering/Resolving]
  - Pain in extremity [Recovering/Resolving]
  - Urticaria [Recovering/Resolving]

NARRATIVE: CASE EVENT DATE: 20170404
